FAERS Safety Report 15972562 (Version 1)
Quarter: 2019Q1

REPORT INFORMATION
  Report Type: Report from Study
  Country: ES (occurrence: ES)
  Receive Date: 20190216
  Receipt Date: 20190216
  Transmission Date: 20190418
  Serious: Yes (Other)
  Sender: FDA-Public Use
  Company Number: ES-ACCORD-107610

PATIENT
  Age: 68 Year
  Sex: Male

DRUGS (3)
  1. FUROSEMIDE. [Concomitant]
     Active Substance: FUROSEMIDE
     Dosage: VARIABLE PATTERN THROUGHOUT ENTRY
     Route: 042
     Dates: start: 20170424, end: 20170810
  2. LEVETIRACETAM. [Suspect]
     Active Substance: LEVETIRACETAM
     Indication: SUBDURAL HAEMATOMA
     Dosage: 1000 MG EVERY 12 HOURS
     Route: 042
     Dates: start: 20170416, end: 20170521
  3. ENOXAPARIN [Suspect]
     Active Substance: ENOXAPARIN
     Indication: PRODUCT USED FOR UNKNOWN INDICATION
     Dosage: 80MG EVERY 12 HOURS UNTIL 21.05.2017. SINCE THEN RULED AS IRREGULAR
     Route: 058
     Dates: start: 20170424, end: 20170521

REACTIONS (1)
  - Eosinophilia [Recovered/Resolved]

NARRATIVE: CASE EVENT DATE: 20170427
